FAERS Safety Report 7536312-2 (Version None)
Quarter: 2011Q2

REPORT INFORMATION
  Report Type: 
  Country: None (occurrence: None)
  Receive Date: 20110608
  Receipt Date: 20110608
  Transmission Date: 20111010
  Serious: Yes (Life-Threatening)
  Sender: FDA-Public Use
  Company Number: None

PATIENT
  Age: 56 Year
  Sex: Female
  Weight: 63.5036 kg

DRUGS (1)
  1. GLIPIZIDE [Suspect]
     Indication: DIABETES MELLITUS
     Dosage: 1 TABLET ONCE A DAY BUCCAL
     Route: 002

REACTIONS (3)
  - BLOOD GLUCOSE DECREASED [None]
  - DRUG EFFECT INCREASED [None]
  - APPARENT DEATH [None]
